FAERS Safety Report 4725842-4 (Version None)
Quarter: 2005Q3

REPORT INFORMATION
  Report Type: 
  Country: None (occurrence: None)
  Receive Date: 20050725
  Receipt Date: 20050725
  Transmission Date: 20060218
  Serious: Yes (Life-Threatening)
  Sender: FDA-Public Use
  Company Number: None

PATIENT
  Age: 34 Year
  Sex: Male
  Weight: 107 kg

DRUGS (2)
  1. HYDROMORPHONE 2MG [Suspect]
     Indication: PROCEDURAL PAIN
     Dosage: 2MG Q2H PRN INTRAVENOUS
     Route: 042
     Dates: start: 20050404, end: 20050405
  2. ONDANSETRON [Concomitant]

REACTIONS (2)
  - POST PROCEDURAL COMPLICATION [None]
  - RESPIRATORY ARREST [None]
